FAERS Safety Report 6817325-2 (Version None)
Quarter: 2010Q3

REPORT INFORMATION
  Report Type: 
  Country: None (occurrence: None)
  Receive Date: 20100706
  Receipt Date: 20100623
  Transmission Date: 20110219
  Serious: Yes (Hospitalization, Other)
  Sender: FDA-Public Use
  Company Number: DE-ROCHE-608742

PATIENT
  Sex: Male
  Weight: 65 kg

DRUGS (40)
  1. METHOXY POLYETHYLENE GLYCOL-EPOETIN BETA [Suspect]
     Dosage: DOSE FREQUENCY: 1, DOSAGE FORM: PREFILLED SYRINGE, LAST DOSE PRIOR TO SAE: 09 MARCH 2009.
     Route: 058
     Dates: start: 20081208
  2. MYCOPHENOLATE MOFETIL [Suspect]
     Route: 065
     Dates: start: 20080829
  3. MYCOPHENOLATE MOFETIL [Suspect]
     Route: 065
     Dates: start: 20080924
  4. MYCOPHENOLATE MOFETIL [Suspect]
     Route: 065
     Dates: start: 20090201
  5. DECORTIN [Suspect]
     Route: 065
     Dates: start: 20080824
  6. DECORTIN [Suspect]
     Route: 065
     Dates: start: 20081124
  7. DECORTIN [Suspect]
     Route: 065
     Dates: end: 20090309
  8. ADVAGRAF [Suspect]
     Route: 065
     Dates: start: 20081110
  9. ADVAGRAF [Suspect]
     Route: 065
  10. ADVAGRAF [Suspect]
     Route: 065
     Dates: start: 20090409
  11. LINEZOLID [Suspect]
     Indication: PRODUCT USED FOR UNKNOWN INDICATION
     Route: 065
     Dates: start: 20090320, end: 20090409
  12. AMIODARONE HCL [Concomitant]
     Dates: start: 20080924
  13. CONCOR [Concomitant]
     Dates: start: 20080924
  14. CINACALCET HYDROCHLORIDE [Concomitant]
     Dates: start: 20081002
  15. CINACALCET HYDROCHLORIDE [Concomitant]
  16. COTRIM [Concomitant]
     Dates: start: 20080924
  17. OMEPRAZOLE [Concomitant]
     Dates: start: 20080924
  18. TORSEMIDE [Concomitant]
     Dates: start: 20081002
  19. TORSEMIDE [Concomitant]
  20. VALCYTE [Concomitant]
     Dates: start: 20080804
  21. VALCYTE [Concomitant]
     Dates: start: 20081111
  22. VALCYTE [Concomitant]
     Dates: end: 20090131
  23. AMLODIPINE [Concomitant]
     Dates: start: 20080924
  24. AMLODIPINE [Concomitant]
  25. PRAVASTATIN SODIUM [Concomitant]
  26. CORDAREX [Concomitant]
  27. DIFLUCAN [Concomitant]
     Dates: end: 20090131
  28. LANTUS [Concomitant]
     Dosage: TDD: 10 IE
  29. LANTUS [Concomitant]
     Dosage: TDD: 16 E.
     Dates: start: 20090227
  30. ACTRAPID [Concomitant]
  31. ZIENAM [Concomitant]
     Dates: start: 20090302, end: 20090303
  32. ADVAGRAF [Concomitant]
     Dates: start: 20090201
  33. ZIENAM [Concomitant]
     Dates: start: 20090302, end: 20090303
  34. DECORTIN [Concomitant]
     Dates: start: 20090201, end: 20090309
  35. NORVASC [Concomitant]
     Dates: start: 20080924
  36. TOREM [Concomitant]
     Dates: start: 20090901
  37. TOREM [Concomitant]
     Dates: start: 20090201
  38. FLUKONAZOL [Concomitant]
     Dates: start: 20090201
  39. INSULINE [Concomitant]
     Dosage: DOSE REPORTED AS ACC
     Dates: start: 20090227
  40. NEXIUM [Concomitant]
     Dates: start: 20090323

REACTIONS (4)
  - DRUG TOXICITY [None]
  - ENTEROCOCCAL INFECTION [None]
  - HAEMORRHAGIC ANAEMIA [None]
  - MENINGITIS ENTEROCOCCAL [None]
